FAERS Safety Report 21503911 (Version 1)
Quarter: 2022Q4

REPORT INFORMATION
  Report Type: Spontaneous
  Country: JP (occurrence: JP)
  Receive Date: 20221025
  Receipt Date: 20221025
  Transmission Date: 20230113
  Serious: Yes (Hospitalization)
  Sender: FDA-Public Use
  Company Number: JP-DSJP-DSJ-2022-137901

PATIENT
  Age: 73 Year
  Sex: Female

DRUGS (8)
  1. OLMESARTAN MEDOXOMIL [Suspect]
     Active Substance: OLMESARTAN MEDOXOMIL
     Indication: Product used for unknown indication
     Dosage: 20MG/DAY
     Route: 065
  2. OSIMERTINIB [Suspect]
     Active Substance: OSIMERTINIB
     Indication: Non-small cell lung cancer
     Dosage: 80MG/DAY
     Route: 048
  3. OSIMERTINIB [Suspect]
     Active Substance: OSIMERTINIB
     Dosage: 40MG/DAY
     Route: 048
  4. URSODIOL [Concomitant]
     Active Substance: URSODIOL
     Dosage: 600MG/DAY
     Route: 065
  5. CLOSTRIDIUM BUTYRICUM SPORES STRAIN M-55 [Concomitant]
     Active Substance: CLOSTRIDIUM BUTYRICUM SPORES STRAIN M-55
     Dosage: 3G/DAY
     Route: 065
  6. ESOMEPRAZOLE MAGNESIUM [Concomitant]
     Active Substance: ESOMEPRAZOLE MAGNESIUM
     Dosage: 20MG/DAY
     Route: 065
  7. SUCRALFATE [Concomitant]
     Active Substance: SUCRALFATE
     Dosage: 30ML/DAY
     Route: 065
  8. TRAMADOL HYDROCHLORIDE [Concomitant]
     Active Substance: TRAMADOL HYDROCHLORIDE
     Dosage: 75MG/DAY
     Route: 065

REACTIONS (3)
  - Cardiac failure acute [Recovering/Resolving]
  - Stress cardiomyopathy [Recovering/Resolving]
  - Stress cardiomyopathy [Recovering/Resolving]
